FAERS Safety Report 4818825-7 (Version None)
Quarter: 2005Q4

REPORT INFORMATION
  Report Type: 
  Country: None (occurrence: None)
  Receive Date: 20051101
  Receipt Date: 20051019
  Transmission Date: 20060501
  Serious: Yes (Death)
  Sender: FDA-Public Use
  Company Number: MK200510-0204-1

PATIENT
  Age: 72 Year
  Sex: Male

DRUGS (3)
  1. TL201 THALLIUM CHLORIDE [Suspect]
     Indication: SCAN MYOCARDIAL PERFUSION
     Dosage: ONE TIME, IV
     Route: 042
     Dates: start: 20051018, end: 20051018
  2. ADENOSCAN [Suspect]
     Indication: STRESS
     Dosage: OME TIME, IV
     Route: 042
     Dates: start: 20051018, end: 20051018
  3. CARDIOLITE [Suspect]
     Indication: CARDIAC STRESS TEST
     Dosage: IV
     Route: 042
     Dates: start: 20051018, end: 20051018

REACTIONS (3)
  - CARDIO-RESPIRATORY ARREST [None]
  - DYSPNOEA [None]
  - RESPIRATORY ARREST [None]
